FAERS Safety Report 5751418-6 (Version None)
Quarter: 2008Q2

REPORT INFORMATION
  Report Type: 
  Country: None (occurrence: None)
  Receive Date: 20080527
  Receipt Date: 20080507
  Transmission Date: 20081010
  Serious: Yes (Death)
  Sender: FDA-Public Use
  Company Number: 2008AL003848

PATIENT
  Age: 73 Year
  Sex: Male

DRUGS (7)
  1. DIGOXIN [Suspect]
     Dosage: 0.125 QOD PO
     Route: 048
  2. COREG [Concomitant]
  3. SYNTHROID [Concomitant]
  4. PRIMACOR [Concomitant]
  5. TURSOMIDE [Concomitant]
  6. AMIODERONE [Concomitant]
  7. SPIRONOLACTONE [Concomitant]

REACTIONS (1)
  - DEATH [None]
